FAERS Safety Report 5206844-0 (Version None)
Quarter: 2006Q4

REPORT INFORMATION
  Report Type: 
  Country: None (occurrence: None)
  Receive Date: 20061026
  Receipt Date: 20060823
  Transmission Date: 20070319
  Serious: No
  Sender: FDA-Public Use
  Company Number: 2006103243

PATIENT
  Age: 75 Year
  Sex: Male
  Weight: 72.5755 kg

DRUGS (4)
  1. LYRICA [Suspect]
     Indication: SCIATICA
     Dosage: 50 MG (50 MG, 1 IN 1 D)
     Dates: start: 20060801, end: 20060801
  2. PERCOCET [Suspect]
     Indication: SCIATICA
     Dates: start: 20060801
  3. THOMAPYRIN N (ACETYLSALICYLIC ACID, CAFFEINE, PARACETAMOL) [Concomitant]
  4. ALLOPURINOL SODIUM [Concomitant]

REACTIONS (4)
  - CONDITION AGGRAVATED [None]
  - CONSTIPATION [None]
  - DRUG INEFFECTIVE [None]
  - SCIATICA [None]
